FAERS Safety Report 17134239 (Version 1)
Quarter: 2019Q4

REPORT INFORMATION
  Report Type: Spontaneous
  Country: HU (occurrence: HU)
  Receive Date: 20191210
  Receipt Date: 20191210
  Transmission Date: 20200122
  Serious: Yes (Other)
  Sender: FDA-Public Use
  Company Number: HU-TEVA-2019-HU-1148354

PATIENT
  Age: 60 Year
  Sex: Female

DRUGS (2)
  1. EGIRAMLON [Concomitant]
     Dosage: DF=10 MG RAMIPRIL/5 MG AMLODIPINE?FOR ACTIVE INGREDIENT AMLODIPINE THE STRENGTH IS 5 MILLIGRAM .?FOR
     Route: 048
  2. AMLODIPIN-TEVA 5 MG TABLETTA [Suspect]
     Active Substance: AMLODIPINE BESYLATE
     Dosage: 5 MG 1 DAYS
     Route: 048

REACTIONS (2)
  - Periorbital oedema [Unknown]
  - Face oedema [Unknown]

NARRATIVE: CASE EVENT DATE: 20190930
